FAERS Safety Report 6424026-1 (Version None)
Quarter: 2009Q4

REPORT INFORMATION
  Report Type: 
  Country: None (occurrence: None)
  Receive Date: 20091030
  Receipt Date: 20091030
  Transmission Date: 20100525
  Serious: Yes (Life-Threatening, Hospitalization)
  Sender: FDA-Public Use
  Company Number: None

PATIENT
  Age: 27 Year
  Sex: Female
  Weight: 61.2356 kg

DRUGS (1)
  1. KLONOPIN [Suspect]
     Indication: ANXIETY
     Dosage: 1MG TWICE A DAY PO
     Route: 048
     Dates: start: 20090909, end: 20090910

REACTIONS (4)
  - AMNESIA [None]
  - FEELING COLD [None]
  - SUICIDE ATTEMPT [None]
  - UNRESPONSIVE TO STIMULI [None]
